FAERS Safety Report 8416947-5 (Version None)
Quarter: 2012Q2

REPORT INFORMATION
  Report Type: 
  Country: None (occurrence: None)
  Receive Date: 20120606
  Receipt Date: 20120531
  Transmission Date: 20120825
  Serious: Yes (Disabling)
  Sender: FDA-Public Use
  Company Number: US-PFIZER INC-2012131810

PATIENT
  Sex: Male
  Weight: 124.7 kg

DRUGS (3)
  1. LYRICA [Suspect]
     Indication: PAIN
     Dosage: UNK, 2X/DAY
     Route: 048
  2. VIAGRA [Suspect]
     Indication: ERECTILE DYSFUNCTION
     Dosage: 50 MG, AS NEEDED
     Route: 048
  3. LISINOPRIL [Concomitant]
     Dosage: UNK

REACTIONS (3)
  - ARTHROPATHY [None]
  - ARTHRITIS [None]
  - INTERVERTEBRAL DISC DEGENERATION [None]
